FAERS Safety Report 7046447-9 (Version None)
Quarter: 2010Q4

REPORT INFORMATION
  Report Type: 
  Country: None (occurrence: None)
  Receive Date: 20101014
  Receipt Date: 20101007
  Transmission Date: 20110411
  Serious: No
  Sender: FDA-Public Use
  Company Number: US-B.I. PHARMACEUTICALS,INC./RIDGEFIELD-2010-BP-11372BP

PATIENT
  Age: 67 Year
  Sex: Female

DRUGS (2)
  1. SPIRIVA [Suspect]
     Indication: LUNG DISORDER
     Dosage: 18 MCG
     Route: 055
  2. SORIATANE [Concomitant]
     Indication: PSORIASIS
     Route: 048

REACTIONS (6)
  - COUGH [None]
  - DYSPNOEA [None]
  - HYPERTENSION [None]
  - INCREASED UPPER AIRWAY SECRETION [None]
  - SINUSITIS [None]
  - VITREOUS DETACHMENT [None]
